FAERS Safety Report 16880739 (Version 1)
Quarter: 2019Q4

REPORT INFORMATION
  Report Type: Spontaneous
  Country: PT (occurrence: PT)
  Receive Date: 20191003
  Receipt Date: 20191003
  Transmission Date: 20200122
  Serious: Yes (Other)
  Sender: FDA-Public Use
  Company Number: PT-ASTRAZENECA-2019SF38516

PATIENT
  Age: 66 Year
  Sex: Female

DRUGS (5)
  1. XIGDUO XR [Suspect]
     Active Substance: DAPAGLIFLOZIN PROPANEDIOL\METFORMIN HYDROCHLORIDE
     Dosage: (5+850), 2XDAY
     Route: 048
     Dates: start: 20181111, end: 20190907
  2. GLICAZIDE [Concomitant]
     Active Substance: GLICLAZIDE
     Dosage: 1000, 2XDAY
  3. EUCREAS [Concomitant]
     Active Substance: METFORMIN HYDROCHLORIDE\VILDAGLIPTIN
     Dosage: 1000
  4. EUCREAS [Concomitant]
     Active Substance: METFORMIN HYDROCHLORIDE\VILDAGLIPTIN
     Dosage: 1000 + 50
  5. LANTUS [Concomitant]
     Active Substance: INSULIN GLARGINE
     Dosage: 1000, 2XDAY

REACTIONS (5)
  - Pancreatic neoplasm [Unknown]
  - Weight decreased [Unknown]
  - Polyuria [Unknown]
  - Glycosylated haemoglobin increased [Unknown]
  - Polydipsia [Unknown]

NARRATIVE: CASE EVENT DATE: 20190228
